FAERS Safety Report 7220569-1 (Version None)
Quarter: 2011Q1

REPORT INFORMATION
  Report Type: 
  Country: None (occurrence: None)
  Receive Date: 20110111
  Receipt Date: 20110105
  Transmission Date: 20110831
  Serious: Yes (Hospitalization)
  Sender: FDA-Public Use
  Company Number: JP-JNJFOC-20101206078

PATIENT
  Age: 41 Year
  Sex: Male
  Weight: 55 kg

DRUGS (10)
  1. OXAROL [Concomitant]
     Indication: PSORIATIC ARTHROPATHY
  2. DOVONEX [Concomitant]
     Indication: PSORIATIC ARTHROPATHY
  3. ANTEBATE [Concomitant]
     Indication: PSORIATIC ARTHROPATHY
     Dosage: START DATE BEFORE INFLIXIMAB THERAPY
  4. CALONAL [Concomitant]
     Indication: PROPHYLAXIS
     Route: 048
  5. REMICADE [Suspect]
     Indication: PSORIATIC ARTHROPATHY
     Route: 042
  6. REMICADE [Suspect]
     Route: 042
  7. REMICADE [Suspect]
     Route: 042
  8. REMICADE [Suspect]
     Route: 042
  9. LOXONIN [Concomitant]
     Indication: PROPHYLAXIS
     Route: 048
  10. TALION [Concomitant]
     Indication: PROPHYLAXIS
     Route: 048

REACTIONS (3)
  - HYPOAESTHESIA [None]
  - PSORIASIS [None]
  - ARTHRALGIA [None]
